FAERS Safety Report 4517122-7 (Version None)
Quarter: 2005Q1

REPORT INFORMATION
  Report Type: 
  Country: None (occurrence: None)
  Receive Date: 20041007
  Receipt Date: 20040826
  Transmission Date: 20050727
  Serious: Yes (Hospitalization)
  Sender: FDA-Public Use
  Company Number: 234302K04USA

PATIENT
  Age: 40 Year
  Sex: Male
  Weight: 68.0396 kg

DRUGS (4)
  1. REBIF [Suspect]
     Indication: MULTIPLE SCLEROSIS
     Dosage: 44 MCG, 3 IN 1 WEEKS
     Dates: start: 20040524
  2. ZOLOFT [Concomitant]
  3. TAMSULOSIN (TAMSULOSIN) [Concomitant]
  4. LANTUS AND HUMALOG [Concomitant]

REACTIONS (4)
  - ABASIA [None]
  - GAIT DISTURBANCE [None]
  - HYPOKINESIA [None]
  - MULTIPLE SCLEROSIS [None]
